FAERS Safety Report 7402917-2 (Version None)
Quarter: 2011Q2

REPORT INFORMATION
  Report Type: 
  Country: None (occurrence: None)
  Receive Date: 20110408
  Receipt Date: 20110404
  Transmission Date: 20111010
  Serious: Yes (Hospitalization, Other)
  Sender: FDA-Public Use
  Company Number: FR-PURDUE-MAG-2011-0001487

PATIENT
  Age: 2 Year
  Sex: Male

DRUGS (1)
  1. NON-PMN BUPRENORPHINE [Suspect]
     Indication: PRODUCT USED FOR UNKNOWN INDICATION
     Route: 065

REACTIONS (12)
  - ACCIDENTAL EXPOSURE [None]
  - REFUSAL OF TREATMENT BY PATIENT [None]
  - OVERDOSE [None]
  - DYSKINESIA [None]
  - MIOSIS [None]
  - LUNG DISORDER [None]
  - LEUKOENCEPHALOPATHY [None]
  - HYPERTONIA [None]
  - HYPERREFLEXIA [None]
  - TOXICITY TO VARIOUS AGENTS [None]
  - COMA [None]
  - PYREXIA [None]
